FAERS Safety Report 9084332 (Version 1)
Quarter: 2013Q1

REPORT INFORMATION
  Report Type: Spontaneous
  Country: BR (occurrence: BR)
  Receive Date: 20130218
  Receipt Date: 20130218
  Transmission Date: 20140127
  Serious: Yes (Other)
  Sender: FDA-Public Use
  Company Number: PHHY2013BR015140

PATIENT
  Sex: Female
  Weight: 36 kg

DRUGS (1)
  1. FORASEQ [Suspect]
     Indication: ASTHMATIC CRISIS
     Dosage: 1 DF, PRN

REACTIONS (9)
  - Dermatitis atopic [Recovered/Resolved]
  - Generalised erythema [Recovered/Resolved]
  - Pruritus generalised [Recovered/Resolved]
  - Pain [Recovered/Resolved]
  - Nasopharyngitis [Recovering/Resolving]
  - Asthmatic crisis [Not Recovered/Not Resolved]
  - Wheezing [Not Recovered/Not Resolved]
  - Dyspnoea [Not Recovered/Not Resolved]
  - Cough [Not Recovered/Not Resolved]
